FAERS Safety Report 4844084-5 (Version None)
Quarter: 2005Q4

REPORT INFORMATION
  Report Type: 
  Country: None (occurrence: None)
  Receive Date: 20051202
  Receipt Date: 20051006
  Transmission Date: 20060501
  Serious: Yes (Hospitalization, Disabling)
  Sender: FDA-Public Use
  Company Number: US-MERCK-0510USA04874

PATIENT
  Age: 58 Year
  Sex: Female

DRUGS (4)
  1. VIOXX [Suspect]
     Indication: ARTHRALGIA
     Route: 048
     Dates: start: 19991206, end: 20040101
  2. VIOXX [Suspect]
     Route: 048
     Dates: start: 19991206, end: 20040101
  3. TYLENOL [Concomitant]
     Route: 048
  4. ALEVE [Concomitant]
     Route: 048

REACTIONS (7)
  - BACK INJURY [None]
  - BACK PAIN [None]
  - CEREBRAL ARTERY OCCLUSION [None]
  - HYPERTENSION [None]
  - INTERVERTEBRAL DISC DEGENERATION [None]
  - JOINT INJURY [None]
  - SCIATICA [None]
